FAERS Safety Report 24291344 (Version 1)
Quarter: 2024Q3

REPORT INFORMATION
  Report Type: Spontaneous
  Country: US (occurrence: None)
  Receive Date: 20240906
  Receipt Date: 20240906
  Transmission Date: 20241017
  Serious: No
  Sender: DOMPE FARMACEUTICI
  Company Number: US-FARMAPROD-202308-202308-2511

PATIENT
  Age: 79 Year
  Sex: Female

DRUGS (16)
  1. OXERVATE [Suspect]
     Active Substance: CENEGERMIN-BKBJ
     Indication: Neurotrophic keratopathy
     Route: 047
     Dates: start: 20191021, end: 20191216
  2. OXERVATE [Suspect]
     Active Substance: CENEGERMIN-BKBJ
     Route: 047
     Dates: start: 20230818
  3. OXERVATE [Suspect]
     Active Substance: CENEGERMIN-BKBJ
  4. MULTIVITAMIN 50 PLUS [Concomitant]
  5. PROBIOTIC 10B [Concomitant]
  6. RESTASIS [Concomitant]
     Active Substance: CYCLOSPORINE
  7. XIIDRA [Concomitant]
     Active Substance: LIFITEGRAST
  8. JARDIANCE [Concomitant]
     Active Substance: EMPAGLIFLOZIN
  9. LANTUS [Concomitant]
     Active Substance: INSULIN GLARGINE
     Dosage: VIAL
  10. METFORMIN HYDROCHLORIDE [Concomitant]
     Active Substance: METFORMIN HYDROCHLORIDE
  11. VENLAFAXINE HCL [Concomitant]
     Active Substance: VENLAFAXINE HYDROCHLORIDE
  12. GABAPENTIN [Concomitant]
     Active Substance: GABAPENTIN
  13. TYLENOL [Concomitant]
     Active Substance: ACETAMINOPHEN
  14. ATORVASTATIN CALCIUM [Concomitant]
     Active Substance: ATORVASTATIN CALCIUM
  15. SYNTHROID [Concomitant]
     Active Substance: LEVOTHYROXINE SODIUM
  16. HYDROCHLOROTHIAZIDE\LOSARTAN [Concomitant]
     Active Substance: HYDROCHLOROTHIAZIDE\LOSARTAN

REACTIONS (6)
  - Periorbital pain [Recovering/Resolving]
  - Wrong technique in product usage process [Unknown]
  - Eye pain [Unknown]
  - Product use complaint [Unknown]
  - Herpes zoster [Unknown]
  - Eye irritation [Unknown]

NARRATIVE: CASE EVENT DATE: 20230820
